FAERS Safety Report 16996549 (Version 1)
Quarter: 2019Q4

REPORT INFORMATION
  Report Type: Spontaneous
  Country: US (occurrence: US)
  Receive Date: 20191106
  Receipt Date: 20191106
  Transmission Date: 20200122
  Serious: Yes (Other)
  Sender: FDA-Public Use
  Company Number: US-EMCURE PHARMACEUTICALS LTD-2019-EPL-0991

PATIENT
  Age: 45 Year
  Sex: Male

DRUGS (1)
  1. LEVOFLOXACIN. [Suspect]
     Active Substance: LEVOFLOXACIN
     Indication: EVIDENCE BASED TREATMENT
     Dosage: UNK

REACTIONS (5)
  - Acute generalised exanthematous pustulosis [Unknown]
  - Hidradenitis [Unknown]
  - Acute febrile neutrophilic dermatosis [Unknown]
  - Pustular psoriasis [Unknown]
  - Sebaceous adenitis [Unknown]
